FAERS Safety Report 15301109 (Version 2)
Quarter: 2018Q3

REPORT INFORMATION
  Report Type: Spontaneous
  Country: US (occurrence: US)
  Receive Date: 20180821
  Receipt Date: 20180824
  Transmission Date: 20181010
  Serious: Yes (Hospitalization)
  Sender: FDA-Public Use
  Company Number: US-PFIZER INC-2018334061

PATIENT
  Age: 58 Year
  Sex: Female
  Weight: 63.99 kg

DRUGS (1)
  1. FLECTOR [Suspect]
     Active Substance: DICLOFENAC EPOLAMINE
     Indication: PAIN IN EXTREMITY
     Dosage: 1.3 %, 1X/DAY, ON RIGHT LEG BELOW THE KNEE FOR 6?8 HOURS
     Route: 062
     Dates: start: 2018, end: 201806

REACTIONS (4)
  - Loss of consciousness [Recovered/Resolved]
  - Pain in extremity [Unknown]
  - Peripheral artery occlusion [Recovered/Resolved with Sequelae]
  - Inappropriate schedule of drug administration [Unknown]

NARRATIVE: CASE EVENT DATE: 2018
